FAERS Safety Report 23638755 (Version 1)
Quarter: 2024Q1

REPORT INFORMATION
  Report Type: Spontaneous
  Country: US (occurrence: US)
  Receive Date: 20240315
  Receipt Date: 20240315
  Transmission Date: 20240410
  Serious: Yes (Hospitalization, Other)
  Sender: FDA-Public Use
  Company Number: None

PATIENT
  Age: 65 Year
  Sex: Male

DRUGS (8)
  1. TACROLIMUS [Suspect]
     Active Substance: TACROLIMUS
     Indication: Immunosuppressant drug therapy
  2. POSACONAZOLE [Suspect]
     Active Substance: POSACONAZOLE
     Indication: Soft tissue infection
     Dosage: LOADING DOSE
  3. POSACONAZOLE [Suspect]
     Active Substance: POSACONAZOLE
     Indication: Skin infection
     Dosage: PLANNED COURSE OF 3-6 MONTHS
     Route: 048
  4. POSACONAZOLE [Suspect]
     Active Substance: POSACONAZOLE
     Indication: Fungal infection
     Dosage: PLANNED COURSE OF 3-6 MONTHS
     Route: 048
  5. MYCOPHENOLIC ACID [Concomitant]
     Active Substance: MYCOPHENOLIC ACID
     Indication: Immunosuppressant drug therapy
  6. AMPICILLIN SODIUM\SULBACTAM SODIUM [Concomitant]
     Active Substance: AMPICILLIN SODIUM\SULBACTAM SODIUM
     Indication: Evidence based treatment
  7. PREDNISONE [Concomitant]
     Active Substance: PREDNISONE
     Indication: Immunosuppressant drug therapy
  8. SULFAMETHOXAZOLE\TRIMETHOPRIM [Concomitant]
     Active Substance: SULFAMETHOXAZOLE\TRIMETHOPRIM
     Indication: Prophylaxis

REACTIONS (10)
  - Toxicity to various agents [Unknown]
  - Drug interaction [Unknown]
  - Inappropriate schedule of product administration [Unknown]
  - Immunosuppressant drug level increased [Unknown]
  - Escherichia infection [Recovering/Resolving]
  - Staphylococcal infection [Recovering/Resolving]
  - Soft tissue infection [Recovering/Resolving]
  - Fungal infection [Recovering/Resolving]
  - Skin infection [Recovering/Resolving]
  - Acute kidney injury [Unknown]
